FAERS Safety Report 4882411-3 (Version None)
Quarter: 2006Q1

REPORT INFORMATION
  Report Type: 
  Country: None (occurrence: None)
  Receive Date: 20060117
  Receipt Date: 20060105
  Transmission Date: 20060701
  Serious: Yes (Hospitalization)
  Sender: FDA-Public Use
  Company Number: US-AVENTIS-200610168GDDC

PATIENT
  Sex: Female

DRUGS (1)
  1. LANTUS [Suspect]
     Route: 058
     Dates: start: 20050523

REACTIONS (4)
  - ASTHMA [None]
  - BRONCHITIS CHRONIC [None]
  - COUGH [None]
  - DYSPNOEA [None]
